FAERS Safety Report 12289762 (Version 1)
Quarter: 2016Q2

REPORT INFORMATION
  Report Type: Report from Study
  Country: FR (occurrence: FR)
  Receive Date: 20160421
  Receipt Date: 20160421
  Transmission Date: 20160815
  Serious: Yes (Death)
  Sender: FDA-Public Use
  Company Number: PHHO2013FR019256

PATIENT
  Age: 42 Year
  Sex: Male
  Weight: 92 kg

DRUGS (1)
  1. PAZOPANIB [Suspect]
     Active Substance: PAZOPANIB
     Indication: GASTROINTESTINAL STROMAL TUMOUR
     Dosage: 800 MG, QD
     Route: 048
     Dates: start: 20130221, end: 20130413

REACTIONS (1)
  - Respiratory failure [Fatal]

NARRATIVE: CASE EVENT DATE: 20130404
